FAERS Safety Report 16077589 (Version 2)
Quarter: 2019Q1

REPORT INFORMATION
  Report Type: Spontaneous
  Country: US (occurrence: US)
  Receive Date: 20190315
  Receipt Date: 20190327
  Transmission Date: 20190418
  Serious: No
  Sender: FDA-Public Use
  Company Number: US-UNITED THERAPEUTICS-UNT-2019-004476

PATIENT
  Sex: Female
  Weight: 61.22 kg

DRUGS (3)
  1. TADALAFIL. [Concomitant]
     Active Substance: TADALAFIL
     Indication: PRODUCT USED FOR UNKNOWN INDICATION
     Route: 065
  2. COUMADIN [Concomitant]
     Active Substance: WARFARIN SODIUM
     Indication: PRODUCT USED FOR UNKNOWN INDICATION
     Route: 065
  3. REMODULIN [Suspect]
     Active Substance: TREPROSTINIL
     Indication: PULMONARY ARTERIAL HYPERTENSION
     Dosage: 0.055 ?G/KG, CONTINUING
     Route: 058
     Dates: start: 20170928

REACTIONS (6)
  - Needle issue [Unknown]
  - Infusion site extravasation [Unknown]
  - Accidental underdose [Unknown]
  - Infusion site pruritus [Unknown]
  - Device issue [Unknown]
  - Device infusion issue [Unknown]
